FAERS Safety Report 12008014 (Version 1)
Quarter: 2016Q1

REPORT INFORMATION
  Report Type: Report from Study
  Country: US (occurrence: US)
  Receive Date: 20160205
  Receipt Date: 20160205
  Transmission Date: 20160526
  Serious: No
  Sender: FDA-Public Use
  Company Number: US-BIOGEN-2013BI033248

PATIENT
  Age: 53 Year
  Sex: Female
  Weight: 98 kg

DRUGS (31)
  1. LORATADINE. [Concomitant]
     Active Substance: LORATADINE
     Route: 048
  2. OMEGA 3 [Concomitant]
     Active Substance: OMEGA-3 FATTY ACIDS
  3. CRANBERRY. [Concomitant]
     Active Substance: CRANBERRY
  4. VITAMIN D [Concomitant]
     Active Substance: CHOLECALCIFEROL
  5. VITAMIN D [Concomitant]
     Active Substance: CHOLECALCIFEROL
  6. PREDNISONE. [Concomitant]
     Active Substance: PREDNISONE
  7. CELEBREX [Concomitant]
     Active Substance: CELECOXIB
     Indication: ARTHRITIS
  8. SIMVASTATIN. [Concomitant]
     Active Substance: SIMVASTATIN
  9. WELLBUTRIN [Concomitant]
     Active Substance: BUPROPION HYDROCHLORIDE
  10. SINGULAIR [Concomitant]
     Active Substance: MONTELUKAST SODIUM
     Route: 048
  11. VITAMIN D3 [Concomitant]
     Active Substance: CHOLECALCIFEROL
  12. VITAMIN E [Concomitant]
     Active Substance: .ALPHA.-TOCOPHEROL
  13. PROAIR HFA [Concomitant]
     Active Substance: ALBUTEROL SULFATE
  14. AMPYRA [Concomitant]
     Active Substance: DALFAMPRIDINE
     Indication: GAIT DISTURBANCE
     Route: 048
     Dates: end: 20130115
  15. CYMBALTA [Concomitant]
     Active Substance: DULOXETINE HYDROCHLORIDE
     Route: 048
  16. FEXOFENADINE HCL [Concomitant]
     Active Substance: FEXOFENADINE HYDROCHLORIDE
     Route: 048
  17. ASMANEX [Concomitant]
     Active Substance: MOMETASONE FUROATE
  18. VANICREAM LITE [Concomitant]
  19. BETASERON [Concomitant]
     Active Substance: INTERFERON BETA-1B
  20. AVONEX [Suspect]
     Active Substance: INTERFERON BETA-1A
     Indication: SECONDARY PROGRESSIVE MULTIPLE SCLEROSIS
     Route: 030
     Dates: start: 19980408, end: 20040901
  21. ALENDRONATE SODIUM. [Concomitant]
     Active Substance: ALENDRONATE SODIUM
  22. DOXEPIN HCL [Concomitant]
     Active Substance: DOXEPIN HYDROCHLORIDE
     Route: 048
  23. ZANTAC [Concomitant]
     Active Substance: RANITIDINE HYDROCHLORIDE
     Route: 048
  24. VITAMIN C [Concomitant]
     Active Substance: ASCORBIC ACID
  25. DULOXETINE. [Concomitant]
     Active Substance: DULOXETINE
  26. AVONEX [Suspect]
     Active Substance: INTERFERON BETA-1A
     Route: 030
     Dates: start: 20091102, end: 2013
  27. HYDROCORTISONE BUTYRATE ONE PERCENT [Concomitant]
  28. ATORVASTATIN [Concomitant]
     Active Substance: ATORVASTATIN
  29. VOLTAREN ONE PERCENT [Concomitant]
     Route: 061
  30. MOBIC [Concomitant]
     Active Substance: MELOXICAM
  31. CELEBREX [Concomitant]
     Active Substance: CELECOXIB
     Indication: ARTHRITIS

REACTIONS (27)
  - Product use issue [Recovered/Resolved]
  - Ankle fracture [Recovered/Resolved]
  - Multiple sclerosis relapse [Recovered/Resolved]
  - Stress [Unknown]
  - Mobility decreased [Unknown]
  - Contusion [Unknown]
  - Ligament rupture [Unknown]
  - Muscle spasticity [Unknown]
  - Limb injury [Recovered/Resolved]
  - Foot fracture [Recovered/Resolved]
  - Pain [Unknown]
  - Injury [Unknown]
  - Fatigue [Unknown]
  - Urinary incontinence [Unknown]
  - Fall [Recovered/Resolved]
  - Pain in extremity [Recovered/Resolved]
  - Muscular weakness [Recovered/Resolved]
  - Pruritus [Unknown]
  - Malaise [Unknown]
  - Dizziness postural [Recovered/Resolved]
  - Migraine [Unknown]
  - Urinary tract infection [Recovered/Resolved]
  - Gait disturbance [Unknown]
  - Osteoporosis [Not Recovered/Not Resolved]
  - Urticaria [Not Recovered/Not Resolved]
  - Hypersensitivity [Unknown]
  - Dysstasia [Recovered/Resolved]

NARRATIVE: CASE EVENT DATE: 2003
